FAERS Safety Report 9850296 (Version 1)
Quarter: 2014Q1

REPORT INFORMATION
  Report Type: Report from Study
  Country: FR (occurrence: FR)
  Receive Date: 20140128
  Receipt Date: 20140128
  Transmission Date: 20141002
  Serious: Yes (Hospitalization)
  Sender: FDA-Public Use
  Company Number: FR-GLAXOSMITHKLINE-B0963770A

PATIENT
  Age: 68 Year
  Sex: Male

DRUGS (4)
  1. PAZOPANIB [Suspect]
     Indication: GASTROINTESTINAL STROMAL TUMOUR
     Dosage: 800MG PER DAY
     Route: 048
     Dates: start: 20131210, end: 20140116
  2. PLAVIX [Concomitant]
     Indication: THROMBOSIS PROPHYLAXIS
     Dates: start: 1995
  3. LOSARTAN WITH HYDROCHLOROTHIAZIDE [Concomitant]
     Indication: HYPERTENSION
     Dates: start: 1995
  4. DILTIAZEM [Concomitant]
     Indication: HYPERTENSION
     Dates: start: 1995

REACTIONS (1)
  - Nephrotic syndrome [Not Recovered/Not Resolved]
